FAERS Safety Report 13950323 (Version 2)
Quarter: 2018Q1

REPORT INFORMATION
  Report Type: Spontaneous
  Country: US (occurrence: US)
  Receive Date: 20170908
  Receipt Date: 20180115
  Transmission Date: 20180508
  Serious: Yes (Hospitalization)
  Sender: FDA-Public Use
  Company Number: US-DSJP-DSU-2017-135529

PATIENT

DRUGS (1)
  1. BENICAR [Suspect]
     Active Substance: OLMESARTAN MEDOXOMIL
     Indication: HYPERTENSION
     Dosage: HALF TABLET DAILY

REACTIONS (3)
  - Nausea [Unknown]
  - Weight decreased [Unknown]
  - Drug administration error [Unknown]

NARRATIVE: CASE EVENT DATE: 20090515
